FAERS Safety Report 25103009 (Version 1)
Quarter: 2025Q1

REPORT INFORMATION
  Report Type: Other
  Country: GB (occurrence: GB)
  Receive Date: 20250321
  Receipt Date: 20250321
  Transmission Date: 20250409
  Serious: Yes (Other)
  Sender: STRIDES
  Company Number: None

PATIENT
  Sex: Female

DRUGS (1)
  1. NAPROXEN [Suspect]
     Active Substance: NAPROXEN
     Indication: Limb injury
     Route: 065

REACTIONS (1)
  - Upper gastrointestinal haemorrhage [Recovered/Resolved]
